FAERS Safety Report 7304045-3 (Version None)
Quarter: 2011Q1

REPORT INFORMATION
  Report Type: 
  Country: None (occurrence: None)
  Receive Date: 20110221
  Receipt Date: 20110207
  Transmission Date: 20110831
  Serious: Yes (Hospitalization, Other)
  Sender: FDA-Public Use
  Company Number: PHHY2011US07642

PATIENT
  Sex: Female
  Weight: 61.4 kg

DRUGS (22)
  1. DUONEB [Concomitant]
     Indication: WHEEZING
  2. FISH OIL [Concomitant]
     Dosage: 1000 MCG, DAILY
  3. PHENERGAN SUPPOSITORY [Concomitant]
     Dosage: 25 MG, PRN
  4. TANDEM [Concomitant]
     Dosage: ONE TABLET DAILY
     Dates: start: 20100223
  5. VITAMIN D [Concomitant]
     Dosage: 50000 U, MONTHLY
  6. LASIX [Concomitant]
     Dosage: 20 MG, DAILY
  7. METOPROLOL [Concomitant]
     Dosage: 25 MG, BID
  8. ASCORBIC ACID [Concomitant]
  9. INFED [Concomitant]
     Dosage: UNK
     Dates: start: 20101101
  10. KLONOPIN [Concomitant]
     Dosage: 5 MG, BID TO TID
  11. LORTAB [Concomitant]
     Dosage: 7.5 MG, PRN 2 EVERY FOUR HRS AS NEEDED
  12. VITAMIN B-12 [Concomitant]
  13. CALCIUM PLUS D [Concomitant]
     Dosage: 600 U, DAILY
  14. GLEEVEC [Suspect]
     Indication: GASTROINTESTINAL STROMAL TUMOUR
     Dosage: 400 MG, QD
     Route: 048
     Dates: start: 20060206
  15. ADVAIR [Concomitant]
     Dosage: 250/50 PUFF TWICE DAILY
  16. COMBIVENT [Concomitant]
     Dosage: 2 PUFFS FOUR TIMES DAILY
  17. ACTONEL [Concomitant]
     Dosage: MONTHLY
  18. PLAVIX [Concomitant]
     Dosage: 75 MG, DAILY
  19. NEXIUM [Concomitant]
     Dosage: 40 MG, DAILY
  20. CELEXA [Concomitant]
     Dosage: 20 MG, BID
  21. TESSALON [Concomitant]
     Dosage: 100 MG, TID PRN
  22. POTASSIUM [Concomitant]
     Dosage: 20 MEQ, DAILY

REACTIONS (23)
  - ACUTE MYOCARDIAL INFARCTION [None]
  - HAEMOGLOBIN DECREASED [None]
  - FALL [None]
  - DIZZINESS [None]
  - BACK PAIN [None]
  - BLOOD PRESSURE DECREASED [None]
  - OSTEOPOROSIS [None]
  - BRONCHITIS [None]
  - LYMPHADENOPATHY [None]
  - OSTEOPOROTIC FRACTURE [None]
  - THORACIC VERTEBRAL FRACTURE [None]
  - LUMBAR VERTEBRAL FRACTURE [None]
  - VOMITING [None]
  - GASTROINTESTINAL DISORDER [None]
  - PNEUMONIA [None]
  - LUNG INFILTRATION [None]
  - CARDIAC FAILURE CONGESTIVE [None]
  - DIASTOLIC DYSFUNCTION [None]
  - COUGH [None]
  - ILEUS [None]
  - NAUSEA [None]
  - CHONDROCALCINOSIS PYROPHOSPHATE [None]
  - OEDEMA PERIPHERAL [None]
